FAERS Safety Report 9861207 (Version 2)
Quarter: 2014Q3

REPORT INFORMATION
  Report Type: Spontaneous
  Country: CA (occurrence: None)
  Receive Date: 20140130
  Receipt Date: 20140801
  Transmission Date: 20150326
  Serious: Yes (Other)
  Sender: FDA-Public Use
  Company Number: CA-014512

PATIENT
  Age: 70 Year
  Sex: Male

DRUGS (11)
  1. DILAUDID [Concomitant]
     Active Substance: HYDROMORPHONE HYDROCHLORIDE
  2. RATIO-EMTEC [Concomitant]
  3. NAPROSN /00256201/ [Concomitant]
  4. FIRMAGON [Suspect]
     Active Substance: DEGARELIX ACETATE
     Indication: PROSTATE CANCER
     Route: 058
     Dates: start: 20131225, end: 20131225
  5. PREDNISONE. [Concomitant]
     Active Substance: PREDNISONE
  6. PROCTOSEDYL /00095901/ [Concomitant]
  7. ATIVAN [Concomitant]
     Active Substance: LORAZEPAM
  8. COLLACE [Concomitant]
  9. IMOVANE [Concomitant]
     Active Substance: ZOPICLONE
  10. LAXOBERAL [Concomitant]
     Active Substance: SODIUM PICOSULFATE
  11. PANTOLOC /01263204/ [Concomitant]

REACTIONS (7)
  - Injection site nodule [None]
  - Haemorrhoids [None]
  - Abdominal mass [None]
  - Fatigue [None]
  - Diarrhoea [None]
  - Prostate cancer [None]
  - Injection site haematoma [None]
